FAERS Safety Report 23225951 (Version 1)
Quarter: 2023Q4

REPORT INFORMATION
  Report Type: Report from Study
  Country: HK (occurrence: None)
  Receive Date: 20231124
  Receipt Date: 20231124
  Transmission Date: 20240110
  Serious: Yes (Hospitalization)
  Sender: FDA-Public Use
  Company Number: 2023A261248

PATIENT
  Age: 78 Year
  Sex: Male
  Weight: 65 kg

DRUGS (11)
  1. CILGAVIMAB\TIXAGEVIMAB [Suspect]
     Active Substance: CILGAVIMAB\TIXAGEVIMAB
     Indication: COVID-19 prophylaxis
     Dosage: 600.0MG ONCE/SINGLE ADMINISTRATION
     Route: 030
     Dates: start: 20221109, end: 20221109
  2. CLOPIDOGREL [Concomitant]
     Active Substance: CLOPIDOGREL BISULFATE
     Indication: Cardiac failure
     Route: 048
     Dates: start: 20230725, end: 20230821
  3. CAPTOPRIL [Concomitant]
     Active Substance: CAPTOPRIL
     Indication: Cardiac failure
     Route: 048
     Dates: start: 20230725, end: 20230821
  4. PANTOPRAZOLE SODIUM [Concomitant]
     Active Substance: PANTOPRAZOLE SODIUM
     Indication: Prophylaxis
     Route: 048
     Dates: start: 20230725
  5. THALIDOMIDE TABLET [Concomitant]
     Indication: Plasma cell myeloma
     Route: 048
     Dates: start: 20220308
  6. CHLORPHENIRAMINE MALEATE TABLET [Concomitant]
     Indication: Symptomatic treatment
     Route: 048
     Dates: start: 20211206
  7. CALCIUM CARBONATE\CHOLECALCIFEROL [Concomitant]
     Active Substance: CALCIUM CARBONATE\CHOLECALCIFEROL
     Indication: Supplementary motor area syndrome
     Route: 048
     Dates: start: 20211206
  8. ASPIRIN [Concomitant]
     Active Substance: ASPIRIN
     Indication: Prophylaxis
     Route: 048
     Dates: start: 20220308
  9. ACYCLOVIR [Concomitant]
     Active Substance: ACYCLOVIR
     Indication: Plasma cell myeloma
     Route: 048
     Dates: start: 20211206
  10. CYCLOPHOSPHAMIDE TABLET [Concomitant]
     Indication: Plasma cell myeloma
     Dosage: AS NEEDED
     Route: 048
     Dates: start: 20211213
  11. DEXAMETHASONE [Concomitant]
     Active Substance: DEXAMETHASONE
     Indication: Plasma cell myeloma
     Dosage: AS NEEDED
     Route: 048
     Dates: start: 20211213

REACTIONS (1)
  - Cardiac failure [Recovered/Resolved]

NARRATIVE: CASE EVENT DATE: 20230723
